FAERS Safety Report 26088617 (Version 1)
Quarter: 2025Q4

REPORT INFORMATION
  Report Type: Spontaneous
  Country: RS (occurrence: RS)
  Receive Date: 20251125
  Receipt Date: 20251125
  Transmission Date: 20260118
  Serious: Yes (Other)
  Sender: MERCK SHARP & DOHME LLC
  Company Number: RS-009507513-2352032

PATIENT
  Age: 57 Year
  Sex: Male

DRUGS (3)
  1. ISENTRESS [Suspect]
     Active Substance: RALTEGRAVIR POTASSIUM
     Route: 048
     Dates: start: 20191029, end: 20240709
  2. TENOFOVIR DISOPROXIL FUMARATE [Suspect]
     Active Substance: TENOFOVIR DISOPROXIL FUMARATE
     Dates: start: 20191029, end: 20240709
  3. EMTRICITABINE [Suspect]
     Active Substance: EMTRICITABINE
     Dates: start: 20191029, end: 20240709

REACTIONS (3)
  - Acute myocardial infarction [Recovered/Resolved]
  - Metabolic syndrome [Recovered/Resolved]
  - Angina unstable [Recovered/Resolved]

NARRATIVE: CASE EVENT DATE: 20231101
